FAERS Safety Report 25985744 (Version 4)
Quarter: 2025Q4

REPORT INFORMATION
  Report Type: Spontaneous
  Country: EU (occurrence: EU)
  Receive Date: 20251031
  Receipt Date: 20251224
  Transmission Date: 20260118
  Serious: Yes (Death, Hospitalization, Other)
  Sender: NOVARTIS
  Company Number: EU-SZ09-PHHY2015CZ057442

PATIENT
  Age: 44 Year
  Sex: Male

DRUGS (7)
  1. TACROLIMUS [Suspect]
     Active Substance: TACROLIMUS
     Indication: Liver transplant
     Dosage: UNK /D(FORMULATION UNKNOWN)
     Route: 065
  2. TACROLIMUS [Suspect]
     Active Substance: TACROLIMUS
     Indication: Immunosuppression
  3. MYCOPHENOLATE MOFETIL [Suspect]
     Active Substance: MYCOPHENOLATE MOFETIL
     Indication: Immunosuppression
     Dosage: UNK
     Route: 065
  4. MYCOPHENOLATE MOFETIL [Suspect]
     Active Substance: MYCOPHENOLATE MOFETIL
     Indication: Liver transplant
  5. MYCOPHENOLIC ACID [Suspect]
     Active Substance: MYCOPHENOLIC ACID
     Indication: Immunosuppression
     Dosage: UNK
     Route: 065
  6. SIROLIMUS [Suspect]
     Active Substance: SIROLIMUS
     Indication: Immunosuppression
     Dosage: UNKNOWN/D
     Route: 065
     Dates: start: 201104
  7. SIROLIMUS [Suspect]
     Active Substance: SIROLIMUS
     Indication: Liver transplant

REACTIONS (17)
  - Fungal sepsis [Fatal]
  - Infection [Fatal]
  - Fungal sepsis [Fatal]
  - Cerebral fungal infection [Fatal]
  - Hemiparesis [Fatal]
  - Pneumonia fungal [Unknown]
  - Epilepsy [Unknown]
  - Brain abscess [Unknown]
  - Hemiparesis [Unknown]
  - Steroid diabetes [Unknown]
  - Lung abscess [Unknown]
  - Decreased appetite [Unknown]
  - Cough [Unknown]
  - Diarrhoea [Unknown]
  - Pyrexia [Unknown]
  - Weight decreased [Unknown]
  - Diabetes mellitus [Unknown]

NARRATIVE: CASE EVENT DATE: 20110401
